FAERS Safety Report 6940086-3 (Version None)
Quarter: 2010Q3

REPORT INFORMATION
  Report Type: 
  Country: None (occurrence: None)
  Receive Date: 20100825
  Receipt Date: 20100812
  Transmission Date: 20110219
  Serious: Yes (Life-Threatening, Hospitalization, Disabling)
  Sender: FDA-Public Use
  Company Number: CA-US-EMD SERONO, INC.-7014232

PATIENT
  Sex: Female

DRUGS (1)
  1. REBIF [Suspect]
     Indication: RELAPSING-REMITTING MULTIPLE SCLEROSIS
     Route: 058
     Dates: end: 20100622

REACTIONS (3)
  - DRUG DISPENSING ERROR [None]
  - MULTIPLE SCLEROSIS RELAPSE [None]
  - RUPTURED CEREBRAL ANEURYSM [None]
